FAERS Safety Report 21257158 (Version 1)
Quarter: 2022Q3

REPORT INFORMATION
  Report Type: Spontaneous
  Country: FR (occurrence: FR)
  Receive Date: 20220826
  Receipt Date: 20220826
  Transmission Date: 20221027
  Serious: Yes (Hospitalization)
  Sender: FDA-Public Use
  Company Number: None

PATIENT
  Age: 82 Year
  Sex: Female
  Weight: 58 kg

DRUGS (7)
  1. BISOPROLOL FUMARATE [Suspect]
     Active Substance: BISOPROLOL FUMARATE
     Indication: Hypertension
     Dosage: UNIT DOSE :  10 MG, FREQUENCY TIME : 1 DAY, THERAPY START DATE : ASKU
     Route: 065
     Dates: end: 20220727
  2. METHOTREXATE [Suspect]
     Active Substance: METHOTREXATE
     Indication: Rheumatoid arthritis
     Dosage: UNIT DOSE :  15 MG, FREQUENCY TIME : 1 WEEKS , THERAPY START DATE : ASKU
     Route: 065
  3. ACETAMINOPHEN [Suspect]
     Active Substance: ACETAMINOPHEN
     Indication: Pain
     Dosage: UNIT DOSE : 1 DOSAGE FORM , FREQUENCY TIME : 1 AS REQUIRED , THERAPY START DATE : ASKU
     Route: 065
  4. FOLIC ACID [Suspect]
     Active Substance: FOLIC ACID
     Indication: Vitamin supplementation
     Dosage: UNIT DOSE : 10 MG, FREQUENCY TIME : 1 WEEKS, THERAPY START DATE : ASKU
     Route: 065
  5. CALCIUM CARBONATE\CHOLECALCIFEROL [Suspect]
     Active Substance: CALCIUM CARBONATE\CHOLECALCIFEROL
     Indication: Vitamin supplementation
     Dosage: ORAL POWDER IN SACHET-DOSE , UNIT DOSE : 2 DOSAGE FORM, FREQUENCY TIME : 1 DAY ,THERAPY START DATE :
     Route: 065
  6. PREDNISONE [Suspect]
     Active Substance: PREDNISONE
     Indication: Rheumatoid arthritis
     Dosage: THERAPY START DATE : ASKU
     Route: 065
     Dates: end: 20220718
  7. COMIRNATY [Suspect]
     Active Substance: TOZINAMERAN
     Indication: COVID-19 immunisation
     Dosage: R2 , COMIRNATY 30 MICROGRAMS/DOSE, DISPERSION FOR INJECTION. MRNA (MODIFIED NUCLEOSIDE) VACCINE AGAI
     Route: 065
     Dates: start: 20220705, end: 20220705

REACTIONS (2)
  - Deep vein thrombosis [Not Recovered/Not Resolved]
  - Pulmonary embolism [Not Recovered/Not Resolved]

NARRATIVE: CASE EVENT DATE: 20220725
